FAERS Safety Report 7706699-6 (Version None)
Quarter: 2011Q3

REPORT INFORMATION
  Report Type: 
  Country: None (occurrence: None)
  Receive Date: 20110824
  Receipt Date: 20110818
  Transmission Date: 20111222
  Serious: Yes (Disabling, Other)
  Sender: FDA-Public Use
  Company Number: US-PFIZER INC-2007035689

PATIENT
  Sex: Male

DRUGS (4)
  1. VIOXX [Concomitant]
  2. NEURONTIN [Suspect]
     Indication: PERIODIC LIMB MOVEMENT DISORDER
     Dosage: 2400 MG, 3X/DAY
  3. CELEBREX [Concomitant]
  4. NEURONTIN [Suspect]
     Indication: BACK DISORDER

REACTIONS (1)
  - WHEELCHAIR USER [None]
